FAERS Safety Report 16235787 (Version 3)
Quarter: 2019Q2

REPORT INFORMATION
  Report Type: Spontaneous
  Country: US (occurrence: US)
  Receive Date: 20190424
  Receipt Date: 20190528
  Transmission Date: 20190711
  Serious: No
  Sender: FDA-Public Use
  Company Number: US-ASTRAZENECA-2019SE61839

PATIENT
  Age: 75 Year
  Sex: Female
  Weight: 56.2 kg

DRUGS (3)
  1. NEXIUM 24HR [Suspect]
     Active Substance: ESOMEPRAZOLE MAGNESIUM
     Indication: GASTROOESOPHAGEAL REFLUX DISEASE
     Route: 048
  2. CELEBREX [Concomitant]
     Active Substance: CELECOXIB
  3. NEXIUM 24HR [Suspect]
     Active Substance: ESOMEPRAZOLE MAGNESIUM
     Indication: BACK PAIN
     Route: 048

REACTIONS (3)
  - Cardiac disorder [Unknown]
  - Intentional product use issue [Unknown]
  - Product physical issue [Unknown]
